FAERS Safety Report 4847710-X (Version None)
Quarter: 2005Q4

REPORT INFORMATION
  Report Type: 
  Country: None (occurrence: None)
  Receive Date: 20051205
  Receipt Date: 20051121
  Transmission Date: 20060501
  Serious: Yes (Other)
  Sender: FDA-Public Use
  Company Number: 12915

PATIENT
  Age: 64 Year
  Sex: Female

DRUGS (3)
  1. CARBOPLATIN [Suspect]
     Dosage: 20 ML ONCE
  2. DEXAMETHASONE [Concomitant]
  3. ZOFRAN [Concomitant]

REACTIONS (3)
  - AGITATION [None]
  - EMOTIONAL DISTRESS [None]
  - FLUSHING [None]
